FAERS Safety Report 9819790 (Version 3)
Quarter: 2014Q1

REPORT INFORMATION
  Report Type: Report from Study
  Country: AU (occurrence: AU)
  Receive Date: 20140116
  Receipt Date: 20140203
  Transmission Date: 20141002
  Serious: Yes (Hospitalization)
  Sender: FDA-Public Use
  Company Number: AU-ROCHE-1334558

PATIENT
  Age: 87 Year
  Sex: Female

DRUGS (4)
  1. RANIBIZUMAB [Suspect]
     Indication: AGE-RELATED MACULAR DEGENERATION
     Route: 050
     Dates: start: 20111114
  2. RANIBIZUMAB [Suspect]
     Route: 050
     Dates: start: 20131126
  3. LANOXIN [Concomitant]
     Indication: CARDIAC FAILURE CONGESTIVE
  4. PARIET [Concomitant]
     Indication: GASTRIC ULCER

REACTIONS (6)
  - Procedural pain [Recovered/Resolved]
  - Umbilical hernia [Recovering/Resolving]
  - Adhesion [Recovered/Resolved]
  - Incisional hernia [Recovered/Resolved]
  - Confusional state [Unknown]
  - Somnolence [Unknown]
